FAERS Safety Report 25012247 (Version 1)
Quarter: 2025Q1

REPORT INFORMATION
  Report Type: Spontaneous
  Country: IN (occurrence: IN)
  Receive Date: 20250226
  Receipt Date: 20250226
  Transmission Date: 20250409
  Serious: Yes (Death)
  Sender: ROCHE
  Company Number: IN-ROCHE-10000080736

PATIENT
  Age: 23 Year
  Sex: Female

DRUGS (1)
  1. TECENTRIQ [Suspect]
     Active Substance: ATEZOLIZUMAB
     Indication: Extraskeletal chondrosarcoma metastatic
     Route: 042
     Dates: start: 20240907

REACTIONS (4)
  - Off label use [Unknown]
  - Platelet count abnormal [Not Recovered/Not Resolved]
  - Haemoglobin decreased [Unknown]
  - Cardiac disorder [Fatal]

NARRATIVE: CASE EVENT DATE: 20240907
